FAERS Safety Report 9275039 (Version 2)
Quarter: 2013Q2

REPORT INFORMATION
  Report Type: Spontaneous
  Country: US (occurrence: US)
  Receive Date: 20130507
  Receipt Date: 20130606
  Transmission Date: 20140414
  Serious: Yes (Other)
  Sender: FDA-Public Use
  Company Number: PHEH2013US009659

PATIENT
  Sex: Female

DRUGS (4)
  1. DIOVAN [Suspect]
     Dosage: 1 DF, DAILY
  2. DIOVAN HCT [Suspect]
     Dosage: 2 DF (80MG VALS/ 12.5MG HYDR), DAILY
     Dates: start: 20130528
  3. CALCIUM [Concomitant]
  4. VITAMINS [Concomitant]

REACTIONS (8)
  - Breast cancer [Unknown]
  - Diabetes mellitus [Unknown]
  - Barrett^s oesophagus [Unknown]
  - Hypothyroidism [Unknown]
  - Nephropathy [Unknown]
  - Joint swelling [Unknown]
  - Scleroderma [Unknown]
  - Blood pressure increased [Unknown]
